FAERS Safety Report 4616642-4 (Version None)
Quarter: 2005Q1

REPORT INFORMATION
  Report Type: 
  Country: None (occurrence: None)
  Receive Date: 20050318
  Receipt Date: 20050308
  Transmission Date: 20050727
  Serious: Yes (Hospitalization)
  Sender: FDA-Public Use
  Company Number: 2005BI001028

PATIENT
  Sex: Female

DRUGS (1)
  1. AVONEX [Suspect]
     Indication: MULTIPLE SCLEROSIS
     Dosage: IM
     Route: 030
     Dates: start: 19990101, end: 20000401

REACTIONS (4)
  - CONDITION AGGRAVATED [None]
  - CONNECTIVE TISSUE DISORDER [None]
  - MULTIPLE SCLEROSIS [None]
  - MYASTHENIA GRAVIS [None]
